FAERS Safety Report 20680923 (Version 3)
Quarter: 2024Q4

REPORT INFORMATION
  Report Type: Spontaneous
  Country: US (occurrence: US)
  Receive Date: 20220406
  Receipt Date: 20241212
  Transmission Date: 20250115
  Serious: No
  Sender: PFIZER
  Company Number: US-PFIZER INC-2021795692

PATIENT
  Age: 72 Year
  Sex: Female

DRUGS (3)
  1. IBRANCE [Suspect]
     Active Substance: PALBOCICLIB
     Indication: Breast cancer female
     Dosage: 125 MG, CYCLIC
     Dates: start: 20210520
  2. IBRANCE [Suspect]
     Active Substance: PALBOCICLIB
     Indication: Breast cancer metastatic
     Dosage: 125 MG, CYCLIC
     Dates: start: 20210602, end: 2021
  3. IBRANCE [Suspect]
     Active Substance: PALBOCICLIB
     Dosage: 100 MG, CYCLIC (TAKE ONE TAB DAILY 3 WEEKS ON, ONE WEEK OFF) QUANTITY: 21, REFILLS: 2
     Route: 048
     Dates: start: 2021

REACTIONS (3)
  - Diarrhoea [Recovered/Resolved]
  - White blood cell count decreased [Unknown]
  - Hypertension [Unknown]

NARRATIVE: CASE EVENT DATE: 20210101
